FAERS Safety Report 4576907-1 (Version None)
Quarter: 2005Q1

REPORT INFORMATION
  Report Type: 
  Country: None (occurrence: None)
  Receive Date: 20050207
  Receipt Date: 20050128
  Transmission Date: 20050727
  Serious: Yes (Hospitalization, Other)
  Sender: FDA-Public Use
  Company Number: HQWYE429607JAN05

PATIENT
  Age: 36 Year
  Sex: Female
  Weight: 45.4 kg

DRUGS (3)
  1. ZOSYN [Suspect]
     Indication: POSTOPERATIVE INFECTION
     Dosage: 3.375 G 1X PER 12 HR, INTRAVENOUS
     Route: 042
     Dates: start: 20041230, end: 20050102
  2. ZOSYN [Suspect]
     Indication: PROPHYLAXIS
     Dosage: 3.375 G 1X PER 12 HR, INTRAVENOUS
     Route: 042
     Dates: start: 20041230, end: 20050102
  3. ZOFRAN [Concomitant]

REACTIONS (5)
  - ANAEMIA [None]
  - BLOOD ALBUMIN DECREASED [None]
  - BODY TEMPERATURE INCREASED [None]
  - CATHETER SEPSIS [None]
  - THROMBOCYTOPENIA [None]
